FAERS Safety Report 5789194-3 (Version None)
Quarter: 2008Q2

REPORT INFORMATION
  Report Type: 
  Country: None (occurrence: None)
  Receive Date: 20080626
  Receipt Date: 20071221
  Transmission Date: 20081010
  Serious: No
  Sender: FDA-Public Use
  Company Number: US-ASTRAZENECA-2007UW28842

PATIENT
  Age: 4 Year
  Sex: Male

DRUGS (4)
  1. PULMICORT-100 [Suspect]
     Indication: ASTHMA
     Route: 055
     Dates: start: 20071201
  2. SINGULAIR [Concomitant]
  3. CLARITIN [Concomitant]
  4. MULTIVIT [Concomitant]

REACTIONS (2)
  - BREATH ODOUR [None]
  - DISTURBANCE IN ATTENTION [None]
